FAERS Safety Report 5930169-9 (Version None)
Quarter: 2008Q4

REPORT INFORMATION
  Report Type: 
  Country: None (occurrence: None)
  Receive Date: 20081024
  Receipt Date: 20081015
  Transmission Date: 20090506
  Serious: Yes (Hospitalization, Other)
  Sender: FDA-Public Use
  Company Number: US-PFIZER INC-2008086909

PATIENT
  Sex: Male
  Weight: 95.454 kg

DRUGS (9)
  1. VIAGRA [Suspect]
     Indication: ERECTILE DYSFUNCTION
  2. COREG [Concomitant]
  3. VASOTEC [Concomitant]
  4. NITROGLYCERIN [Concomitant]
  5. COUMADIN [Concomitant]
  6. LIPITOR [Concomitant]
  7. AVODART [Concomitant]
  8. GLUCOSAMINE [Concomitant]
  9. MULTI-VITAMINS [Concomitant]

REACTIONS (2)
  - ARRHYTHMIA [None]
  - VENTRICULAR TACHYCARDIA [None]
